FAERS Safety Report 17691874 (Version 1)
Quarter: 2020Q2

REPORT INFORMATION
  Report Type: Spontaneous
  Country: US (occurrence: US)
  Receive Date: 20200422
  Receipt Date: 20200422
  Transmission Date: 20200714
  Serious: Yes (Life-Threatening, Hospitalization)
  Sender: FDA-Public Use
  Company Number: US-EMCURE PHARMACEUTICALS LTD-2020-EPL-000492

PATIENT
  Age: 49 Year
  Sex: Male

DRUGS (6)
  1. CARVEDILOL. [Suspect]
     Active Substance: CARVEDILOL
     Dosage: HALF-EMPTY BOTTLE
  2. METHYLENE BLUE. [Interacting]
     Active Substance: METHYLENE BLUE
     Indication: HYPOTENSION
     Dosage: 1 MG/KG
     Route: 040
  3. HYDRALAZINE HYDROCHLORIDE. [Suspect]
     Active Substance: HYDRALAZINE HYDROCHLORIDE
     Dosage: EMPTY BOTTLE
  4. GLUCAGON. [Concomitant]
     Active Substance: GLUCAGON
     Indication: OVERDOSE
     Route: 030
  5. CITALOPRAM HYDROBROMIDE. [Suspect]
     Active Substance: CITALOPRAM HYDROBROMIDE
     Indication: DEPRESSION
  6. METHYLENE BLUE. [Interacting]
     Active Substance: METHYLENE BLUE
     Dosage: 0.5 MG/KG PER HR
     Route: 040

REACTIONS (3)
  - Drug interaction [Unknown]
  - Serotonin syndrome [Recovering/Resolving]
  - Overdose [Unknown]
